FAERS Safety Report 6807765-X (Version None)
Quarter: 2010Q2

REPORT INFORMATION
  Report Type: 
  Country: None (occurrence: None)
  Receive Date: 20100629
  Receipt Date: 20090211
  Transmission Date: 20101027
  Serious: No
  Sender: FDA-Public Use
  Company Number: US-PFIZER INC-2008099693

PATIENT
  Sex: Male
  Weight: 99.773 kg

DRUGS (18)
  1. TIKOSYN [Suspect]
     Indication: ATRIAL FIBRILLATION
     Dosage: 500 MG, 2X/DAY
     Dates: start: 20080101
  2. ATENOLOL [Concomitant]
  3. PLAVIX [Concomitant]
  4. WARFARIN SODIUM [Concomitant]
  5. ASPIRINE [Concomitant]
  6. CRESTOR [Concomitant]
  7. FISH OIL [Concomitant]
  8. ATIVAN [Concomitant]
  9. NEXIUM [Concomitant]
  10. TAMSULOSIN HYDROCHLORIDE [Concomitant]
  11. GLUCOPHAGE [Concomitant]
  12. AVODART [Concomitant]
  13. LYCOPENE [Concomitant]
  14. MAGNESIUM [Concomitant]
  15. MELATONIN [Concomitant]
  16. UBIDECARENONE [Concomitant]
  17. VITAMIN C [Concomitant]
  18. VITAMIN A [Concomitant]

REACTIONS (6)
  - ATRIAL FIBRILLATION [None]
  - BLOOD TESTOSTERONE DECREASED [None]
  - CONDITION AGGRAVATED [None]
  - OESTRADIOL DECREASED [None]
  - PROSTATITIS [None]
  - URINARY TRACT INFECTION [None]
